FAERS Safety Report 16872796 (Version 1)
Quarter: 2019Q4

REPORT INFORMATION
  Report Type: Spontaneous
  Country: US (occurrence: US)
  Receive Date: 20191001
  Receipt Date: 20191001
  Transmission Date: 20200122
  Serious: Yes (Hospitalization, Other)
  Sender: FDA-Public Use
  Company Number: US-ACCORD-156081

PATIENT
  Age: 42 Year
  Sex: Male

DRUGS (1)
  1. FLUOROURACIL. [Suspect]
     Active Substance: FLUOROURACIL
     Indication: RECTAL CANCER
     Dosage: AFTER FIRST ROUND OF CHEMOTHERAPY

REACTIONS (3)
  - Left ventricular dysfunction [Recovered/Resolved]
  - Vomiting [Unknown]
  - Cardiomyopathy [Recovered/Resolved]
